FAERS Safety Report 12156643 (Version 1)
Quarter: 2016Q1

REPORT INFORMATION
  Report Type: Spontaneous
  Country: SI (occurrence: SI)
  Receive Date: 20160307
  Receipt Date: 20160307
  Transmission Date: 20160526
  Serious: Yes (Life-Threatening, Hospitalization)
  Sender: FDA-Public Use
  Company Number: SI-JNJFOC-20160303478

PATIENT
  Age: 10 Year
  Sex: Male
  Weight: 27 kg

DRUGS (6)
  1. URSOFALK [Concomitant]
     Active Substance: URSODIOL
     Indication: COLITIS ULCERATIVE
     Dosage: DURATION: 2 YRS
     Route: 048
  2. KALCIJEV KARBONAT [Concomitant]
     Indication: PROPHYLAXIS
     Dosage: DURATION 1 YEAR
     Route: 048
  3. REMICADE [Suspect]
     Active Substance: INFLIXIMAB
     Indication: COLITIS ULCERATIVE
     Dosage: 200MG IN 250ML 0.9%NACL
     Route: 042
     Dates: start: 20141108, end: 20160212
  4. SALOFALK GR [Concomitant]
     Indication: COLITIS ULCERATIVE
     Dosage: DURATION: 2 YEARS
     Route: 048
  5. ROCALTROL [Concomitant]
     Active Substance: CALCITRIOL
     Indication: PROPHYLAXIS
     Dosage: DURATRION: 1  YEAR
     Route: 048
  6. OMEPRAZOLE. [Concomitant]
     Active Substance: OMEPRAZOLE
     Indication: PROPHYLAXIS
     Dosage: DURATION: 1 YEAR

REACTIONS (2)
  - Infusion related reaction [Recovered/Resolved]
  - Anaphylactic reaction [Recovered/Resolved]

NARRATIVE: CASE EVENT DATE: 20160212
